FAERS Safety Report 10530447 (Version 3)
Quarter: 2014Q4

REPORT INFORMATION
  Report Type: Report from Study
  Country: BE (occurrence: BE)
  Receive Date: 20141021
  Receipt Date: 20141218
  Transmission Date: 20150528
  Serious: Yes (Hospitalization, Other)
  Sender: FDA-Public Use
  Company Number: BE-CELGENE-BEL-2014103118

PATIENT
  Age: 68 Year
  Sex: Female
  Weight: 43.9 kg

DRUGS (9)
  1. REVLIMID [Suspect]
     Active Substance: LENALIDOMIDE
     Route: 048
     Dates: start: 20141023
  2. MLN9708 [Suspect]
     Active Substance: IXAZOMIB
     Route: 065
     Dates: end: 20141002
  3. MLN9708 [Suspect]
     Active Substance: IXAZOMIB
     Route: 065
     Dates: start: 20141023
  4. DEXAMETHASONE. [Suspect]
     Active Substance: DEXAMETHASONE
     Indication: PLASMA CELL MYELOMA
     Route: 048
     Dates: start: 20140703
  5. DEXAMETHASONE. [Suspect]
     Active Substance: DEXAMETHASONE
     Route: 065
     Dates: start: 20141023
  6. DEXAMETHASONE. [Suspect]
     Active Substance: DEXAMETHASONE
     Route: 065
     Dates: end: 20141002
  7. REVLIMID [Suspect]
     Active Substance: LENALIDOMIDE
     Route: 048
     Dates: end: 20141002
  8. REVLIMID [Suspect]
     Active Substance: LENALIDOMIDE
     Indication: PLASMA CELL MYELOMA
     Route: 048
     Dates: start: 20140703
  9. MLN9708 [Suspect]
     Active Substance: IXAZOMIB
     Indication: PLASMA CELL MYELOMA
     Route: 048
     Dates: start: 20140703

REACTIONS (4)
  - Staphylococcal sepsis [Recovered/Resolved]
  - Pneumonia [Recovered/Resolved]
  - Decubitus ulcer [Recovering/Resolving]
  - Staphylococcal bacteraemia [Recovering/Resolving]

NARRATIVE: CASE EVENT DATE: 20141001
